FAERS Safety Report 18872735 (Version 1)
Quarter: 2021Q1

REPORT INFORMATION
  Report Type: Spontaneous
  Country: US (occurrence: US)
  Receive Date: 20210210
  Receipt Date: 20210210
  Transmission Date: 20210420
  Serious: Yes (Death, Hospitalization)
  Sender: FDA-Public Use
  Company Number: None

PATIENT
  Age: 63 Year
  Sex: Female
  Weight: 68.3 kg

DRUGS (3)
  1. GEMCITABINE HYDROCHLORIDE 1296MG [Suspect]
     Active Substance: GEMCITABINE HYDROCHLORIDE
     Dates: end: 20210127
  2. PACLITAXEL PROTEIN?BOUND PARTICLES (ALBUMIN?BOUND) 120MG [Suspect]
     Active Substance: PACLITAXEL
     Dates: end: 20210127
  3. CISPLATIN 41MG [Suspect]
     Active Substance: CISPLATIN
     Dates: end: 20210127

REACTIONS (8)
  - Hypersensitivity [None]
  - Respiratory tract oedema [None]
  - Vena cava thrombosis [None]
  - Cyanosis [None]
  - Hypotension [None]
  - Hot flush [None]
  - Dyspnoea [None]
  - Seizure [None]

NARRATIVE: CASE EVENT DATE: 20210130
